FAERS Safety Report 5715781-4 (Version None)
Quarter: 2008Q2

REPORT INFORMATION
  Report Type: 
  Country: None (occurrence: None)
  Receive Date: 20080424
  Receipt Date: 20080424
  Transmission Date: 20081010
  Serious: Yes (Death)
  Sender: FDA-Public Use
  Company Number: None

PATIENT
  Age: 77 Year
  Sex: Male
  Weight: 89 kg

DRUGS (2)
  1. HEPARIN [Suspect]
     Indication: SURGERY
     Dosage: 5000 UNITS ONCE IV BOLUS; 2000 UNITS ONCE IV BOLUS
     Route: 040
     Dates: start: 20080111, end: 20080111
  2. HEPARIN [Suspect]
     Indication: SURGERY
     Dosage: 5000 UNITS ONCE IV BOLUS; 2000 UNITS ONCE IV BOLUS
     Route: 040
     Dates: start: 20080111, end: 20080122

REACTIONS (15)
  - ARTERIAL RUPTURE [None]
  - ATELECTASIS [None]
  - CARDIOGENIC SHOCK [None]
  - CONTINUOUS HAEMODIAFILTRATION [None]
  - HYPOVOLAEMIC SHOCK [None]
  - INTESTINAL ISCHAEMIA [None]
  - MULTI-ORGAN FAILURE [None]
  - MYOCARDIAL INFARCTION [None]
  - NECROSIS ISCHAEMIC [None]
  - NO THERAPEUTIC RESPONSE [None]
  - PLEURAL EFFUSION [None]
  - PSEUDOMONAL SEPSIS [None]
  - RENAL FAILURE [None]
  - RESPIRATORY FAILURE [None]
  - STENOTROPHOMONAS SEPSIS [None]
